FAERS Safety Report 23484088 (Version 1)
Quarter: 2024Q1

REPORT INFORMATION
  Report Type: Spontaneous
  Country: US (occurrence: US)
  Receive Date: 20240206
  Receipt Date: 20240206
  Transmission Date: 20240410
  Serious: Yes (Other)
  Sender: FDA-Public Use
  Company Number: US-ABBVIE-5603062

PATIENT
  Age: 64 Year
  Sex: Female

DRUGS (2)
  1. RESTASIS [Suspect]
     Active Substance: CYCLOSPORINE
     Indication: Dry eye
     Dosage: FORM STRENGTH WAS 0.5MG/ML
     Route: 047
     Dates: start: 2000
  2. REFRESH P.M. [Suspect]
     Active Substance: MINERAL OIL\PETROLATUM
     Indication: Product used for unknown indication
     Dosage: FORM STRENGTH-MINERAL OIL 425MG/ML AND WHITE PETROLATUM 573MG/ML
     Route: 047

REACTIONS (11)
  - Retinal haemorrhage [Unknown]
  - Immunodeficiency [Unknown]
  - COVID-19 [Unknown]
  - Corneal erosion [Unknown]
  - Immune system disorder [Unknown]
  - Haemorrhoid operation [Unknown]
  - Optic nerve injury [Unknown]
  - Eye disorder [Unknown]
  - Therapeutic product effect incomplete [Unknown]
  - Photophobia [Unknown]
  - Vasculitis [Unknown]
